FAERS Safety Report 11608776 (Version 3)
Quarter: 2015Q4

REPORT INFORMATION
  Report Type: Spontaneous
  Country: US (occurrence: US)
  Receive Date: 20151007
  Receipt Date: 20151021
  Transmission Date: 20160304
  Serious: No
  Sender: FDA-Public Use
  Company Number: US-ACTELION PHARMACEUTICALS US, INC.-A-NJ2015-124818

PATIENT
  Age: 74 Year
  Sex: Female

DRUGS (3)
  1. ADCIRCA [Concomitant]
     Active Substance: TADALAFIL
  2. RITUXAN [Suspect]
     Active Substance: RITUXIMAB
     Indication: PRODUCT USED FOR UNKNOWN INDICATION
     Route: 065
  3. OPSUMIT [Suspect]
     Active Substance: MACITENTAN
     Indication: PULMONARY ARTERIAL HYPERTENSION
     Dosage: 10 MG, QD
     Route: 048
     Dates: start: 20150911

REACTIONS (11)
  - Rales [Unknown]
  - Intervertebral disc protrusion [Unknown]
  - Rash macular [Unknown]
  - Joint swelling [Unknown]
  - Eye swelling [Unknown]
  - Swelling face [Unknown]
  - Diarrhoea [Unknown]
  - Flushing [Unknown]
  - Rheumatoid lung [Unknown]
  - Dyspnoea exertional [Unknown]
  - Oxygen saturation decreased [Recovering/Resolving]
